FAERS Safety Report 4323900-X (Version None)
Quarter: 2004Q1

REPORT INFORMATION
  Report Type: 
  Country: None (occurrence: None)
  Receive Date: 20040326
  Receipt Date: 20031013
  Transmission Date: 20041129
  Serious: No
  Sender: FDA-Public Use
  Company Number: US-GLAXOSMITHKLINE-A0429974A

PATIENT
  Age: 58 Year
  Sex: Female

DRUGS (7)
  1. ADVAIR DISKUS 100/50 [Suspect]
     Indication: ASTHMA
     Dosage: 1PUFF TWICE PER DAY
     Route: 055
     Dates: start: 20010101, end: 20031005
  2. CLARINEX [Concomitant]
  3. SINGULAIR [Concomitant]
  4. MIACALCIN [Concomitant]
  5. AVAPRO [Concomitant]
  6. PREDNISONE [Concomitant]
  7. DARVOCET-N 100 [Concomitant]

REACTIONS (6)
  - DISORIENTATION [None]
  - EAR DISORDER [None]
  - HEART RATE INCREASED [None]
  - INSOMNIA [None]
  - PHARMACEUTICAL PRODUCT COMPLAINT [None]
  - TINNITUS [None]
